FAERS Safety Report 18895654 (Version 1)
Quarter: 2021Q1

REPORT INFORMATION
  Report Type: Spontaneous
  Country: GB (occurrence: GB)
  Receive Date: 20210216
  Receipt Date: 20210216
  Transmission Date: 20210420
  Serious: Yes (Other)
  Sender: FDA-Public Use
  Company Number: GB-JNJFOC-20210216610

PATIENT
  Age: 74 Year
  Sex: Male
  Weight: 105 kg

DRUGS (4)
  1. ASTRAZENECA COVID?19 VACCINE [Suspect]
     Active Substance: AZD-1222
     Indication: PRODUCT USED FOR UNKNOWN INDICATION
     Route: 065
     Dates: start: 20210203
  2. SINVASTATIN [Concomitant]
     Active Substance: SIMVASTATIN
     Indication: HYPERTENSION
     Route: 065
  3. CANDESARTAN. [Concomitant]
     Active Substance: CANDESARTAN
     Indication: HYPERTENSION
     Route: 065
  4. PARACETAMOL [Suspect]
     Active Substance: ACETAMINOPHEN
     Indication: PRODUCT USED FOR UNKNOWN INDICATION
     Route: 065

REACTIONS (2)
  - Tremor [Unknown]
  - Feeling cold [Recovering/Resolving]

NARRATIVE: CASE EVENT DATE: 20210204
